FAERS Safety Report 5473589-1 (Version None)
Quarter: 2007Q4

REPORT INFORMATION
  Report Type: 
  Country: None (occurrence: None)
  Receive Date: 20071001
  Receipt Date: 20070421
  Transmission Date: 20080405
  Serious: No
  Sender: FDA-Public Use
  Company Number: US-ASTRAZENECA-2007UW07802

PATIENT
  Age: 76 Year
  Sex: Female
  Weight: 40.8 kg

DRUGS (6)
  1. ARIMIDEX [Suspect]
     Indication: BREAST CANCER
     Route: 048
     Dates: start: 20060901
  2. FOSAMAX [Concomitant]
  3. LEVOXYL [Concomitant]
  4. CIPRO [Concomitant]
  5. BIAXIN [Concomitant]
  6. MULTI-VITAMIN [Concomitant]

REACTIONS (2)
  - ACNE [None]
  - HOT FLUSH [None]
